FAERS Safety Report 8981942 (Version 1)
Quarter: 2012Q4

REPORT INFORMATION
  Report Type: 
  Country: US (occurrence: US)
  Receive Date: 20121212
  Receipt Date: 20121212
  Transmission Date: 20130627
  Serious: Yes (Death, Other)
  Sender: FDA-Public Use
  Company Number: US-ASTELLAS-1101504

PATIENT
  Sex: Female

DRUGS (5)
  1. TARCEVA [Suspect]
     Indication: PANCREATIC CARCINOMA
     Route: 065
     Dates: start: 200509
  2. XELODA [Suspect]
     Indication: PANCREATIC CARCINOMA
     Route: 065
     Dates: start: 200505, end: 200508
  3. GEMZAR [Concomitant]
     Route: 065
     Dates: start: 200406, end: 200408
  4. GEMZAR [Concomitant]
     Route: 065
     Dates: start: 200501, end: 200503
  5. GEMZAR [Concomitant]
     Route: 065
     Dates: start: 200509

REACTIONS (3)
  - Death [Fatal]
  - Rash [Unknown]
  - Pulmonary embolism [Unknown]
